FAERS Safety Report 10145968 (Version 3)
Quarter: 2014Q2

REPORT INFORMATION
  Report Type: Spontaneous
  Country: US (occurrence: None)
  Receive Date: 20140429
  Receipt Date: 20140513
  Transmission Date: 20141212
  Serious: Yes (Other)
  Sender: FDA-Public Use
  Company Number: AUR-APL-2014-04923

PATIENT
  Age: 65 Year
  Sex: Male

DRUGS (4)
  1. RISPERIDONE [Suspect]
     Indication: BIPOLAR II DISORDER
     Dosage: 1 MG (0.5 MG, 2 IN 1 D), UNKNOWN
  2. ARIPIPRAZOLE [Suspect]
     Indication: BIPOLAR II DISORDER
     Dosage: 5 MG, 1 D, UNKNOWN
  3. LORAZEPAM (LORAZEPAM) [Concomitant]
  4. LITHIUM (LITHIUM) [Concomitant]

REACTIONS (13)
  - Sedation [None]
  - Hypersomnia [None]
  - Frontotemporal dementia [None]
  - Somnolence [None]
  - Treatment noncompliance [None]
  - Apathy [None]
  - Mental impairment [None]
  - Executive dysfunction [None]
  - Decreased interest [None]
  - Anhedonia [None]
  - Apathy [None]
  - Hypercholesterolaemia [None]
  - Drug ineffective [None]
